FAERS Safety Report 8796985 (Version 1)
Quarter: 2012Q4

REPORT INFORMATION
  Report Type: 
  Country: US (occurrence: US)
  Receive Date: 20120919
  Receipt Date: 20120919
  Transmission Date: 20130627
  Serious: Yes (Other)
  Sender: FDA-Public Use
  Company Number: US-009507513-1209USA006086

PATIENT

DRUGS (6)
  1. SAPHRIS [Suspect]
     Dosage: UNK
     Route: 060
  2. KLONOPIN [Suspect]
     Route: 048
  3. EFFEXOR [Suspect]
     Dosage: 75 mg, qd
     Route: 048
  4. XANAX [Suspect]
  5. ABILIFY [Suspect]
     Route: 048
  6. TRILEPTAL [Concomitant]
     Route: 048

REACTIONS (3)
  - Serotonin syndrome [Unknown]
  - Mania [Unknown]
  - Weight increased [Unknown]
